FAERS Safety Report 6341116-2 (Version None)
Quarter: 2009Q3

REPORT INFORMATION
  Report Type: 
  Country: None (occurrence: None)
  Receive Date: 20090904
  Receipt Date: 20090311
  Transmission Date: 20100115
  Serious: No
  Sender: FDA-Public Use
  Company Number: A0661919A

PATIENT
  Age: 51 Year
  Sex: Female
  Weight: 95.9 kg

DRUGS (9)
  1. REQUIP [Suspect]
     Indication: RESTLESS LEGS SYNDROME
     Dosage: 1MG TWICE PER DAY
     Route: 048
     Dates: start: 20051015, end: 20061128
  2. SYNTHROID [Concomitant]
  3. DICYCLOMINE [Concomitant]
  4. LEXAPRO [Concomitant]
  5. CYMBALTA [Concomitant]
  6. TOPAMAX [Concomitant]
  7. PROTONIX [Concomitant]
  8. ALPRAZOLAM [Concomitant]
  9. HYDROCODONE [Concomitant]

REACTIONS (6)
  - ANXIETY [None]
  - DEPRESSION [None]
  - NAUSEA [None]
  - OBSESSIVE-COMPULSIVE DISORDER [None]
  - PATHOLOGICAL GAMBLING [None]
  - WEIGHT INCREASED [None]
